FAERS Safety Report 6256123-8 (Version None)
Quarter: 2009Q3

REPORT INFORMATION
  Report Type: 
  Country: None (occurrence: None)
  Receive Date: 20090706
  Receipt Date: 20090622
  Transmission Date: 20100115
  Serious: Yes (Other)
  Sender: FDA-Public Use
  Company Number: PHHY2009EC22308

PATIENT
  Age: 56 Year
  Sex: Female

DRUGS (3)
  1. ACLASTA [Suspect]
     Indication: OSTEOPOROSIS POSTMENOPAUSAL
     Dosage: 1 STAT DOSE
     Dates: start: 20090528, end: 20090528
  2. FLUCONAZOLE [Concomitant]
     Indication: ONYCHOMYCOSIS
     Dosage: UNK
  3. ZINTREPID [Concomitant]
     Indication: BLOOD CHOLESTEROL INCREASED
     Dosage: 1 TABLET DAILY
     Route: 048

REACTIONS (16)
  - ANAPHYLACTIC REACTION [None]
  - CONJUNCTIVITIS [None]
  - EYE IRRITATION [None]
  - EYE PAIN [None]
  - EYE PRURITUS [None]
  - EYELID FUNCTION DISORDER [None]
  - EYELID OEDEMA [None]
  - FACE OEDEMA [None]
  - INFLUENZA LIKE ILLNESS [None]
  - MALAISE [None]
  - OCULAR HYPERAEMIA [None]
  - PAIN [None]
  - PERIORBITAL OEDEMA [None]
  - PHOTOPHOBIA [None]
  - PYREXIA [None]
  - VISION BLURRED [None]
